FAERS Safety Report 7509052-3 (Version None)
Quarter: 2011Q2

REPORT INFORMATION
  Report Type: 
  Country: None (occurrence: None)
  Receive Date: 20110527
  Receipt Date: 20110519
  Transmission Date: 20111010
  Serious: Yes (Other)
  Sender: FDA-Public Use
  Company Number: US-SANOFI-AVENTIS-2011SA032290

PATIENT
  Age: 3 Year
  Sex: Male

DRUGS (1)
  1. ALLEGRA [Suspect]
     Dosage: DOSE:0.5 TEASPOON(S)
     Route: 048
     Dates: start: 20110518, end: 20110518

REACTIONS (1)
  - ABASIA [None]
